FAERS Safety Report 21489372 (Version 1)
Quarter: 2022Q4

REPORT INFORMATION
  Report Type: Spontaneous
  Country: US (occurrence: US)
  Receive Date: 20221021
  Receipt Date: 20221021
  Transmission Date: 20230113
  Serious: Yes (Hospitalization)
  Sender: FDA-Public Use
  Company Number: US-drreddys-LIT/USA/22/0156071

PATIENT
  Age: 46 Year
  Sex: Female

DRUGS (2)
  1. FENTANYL CITRATE [Suspect]
     Active Substance: FENTANYL CITRATE
     Indication: Neck pain
     Route: 042
  2. HYDROMORPHONE [Suspect]
     Active Substance: HYDROMORPHONE
     Indication: Neck pain
     Route: 042

REACTIONS (4)
  - Respiratory failure [Recovered/Resolved]
  - Quadriplegia [Recovered/Resolved]
  - Condition aggravated [Unknown]
  - Somnolence [Recovering/Resolving]
